FAERS Safety Report 4970633-2 (Version None)
Quarter: 2006Q2

REPORT INFORMATION
  Report Type: 
  Country: None (occurrence: None)
  Receive Date: 20060412
  Receipt Date: 20060328
  Transmission Date: 20061013
  Serious: Yes (Death)
  Sender: FDA-Public Use
  Company Number: US-NOVOPROD-251972

PATIENT
  Age: 61 Year
  Sex: Male
  Weight: 82 kg

DRUGS (8)
  1. NOVOSEVEN [Suspect]
     Indication: POST PROCEDURAL HAEMORRHAGE
     Dosage: 2.4 MG, SINGLE
     Route: 042
  2. HEPARIN [Concomitant]
     Indication: ILL-DEFINED DISORDER
     Dosage: 30000 U, UNK
  3. PROTAMINE SULFATE [Concomitant]
     Indication: ILL-DEFINED DISORDER
     Dosage: 300 UNK, UNK
  4. DDAVP                                   /USA/ [Concomitant]
     Indication: ILL-DEFINED DISORDER
     Dosage: 24 UG, UNK
  5. BLOOD CELLS, PACKED HUMAN [Concomitant]
     Indication: ILL-DEFINED DISORDER
     Dosage: 5 U, UNK
  6. FRESH FROZEN PLASMA [Concomitant]
     Indication: ILL-DEFINED DISORDER
     Dosage: 4 U, UNK
  7. PLATELETS [Concomitant]
     Indication: ILL-DEFINED DISORDER
     Dosage: 10 U, UNK
  8. ACETYLSALICYLIC ACID SRT [Concomitant]
     Indication: ILL-DEFINED DISORDER

REACTIONS (1)
  - DEATH [None]
